FAERS Safety Report 4361298-1 (Version None)
Quarter: 2004Q2

REPORT INFORMATION
  Report Type: 
  Country: None (occurrence: None)
  Receive Date: 20040520
  Receipt Date: 20040323
  Transmission Date: 20050107
  Serious: Yes (Hospitalization)
  Sender: FDA-Public Use
  Company Number: US-BRISTOL-MYERS SQUIBB COMPANY-12541264

PATIENT
  Age: 17 Month
  Sex: Female
  Weight: 9 kg

DRUGS (9)
  1. MAXIPIME [Suspect]
     Indication: PSEUDOMONAS INFECTION
     Dates: start: 20040114, end: 20040126
  2. GENTAMICIN [Suspect]
     Dates: start: 20040114, end: 20040126
  3. TOBRAMYCIN [Concomitant]
     Dates: start: 20040126
  4. MULTI-VITAMIN [Concomitant]
  5. ADEKS [Concomitant]
  6. ULTRASE MT20 [Concomitant]
  7. PULMOZYME [Concomitant]
  8. ALBUTEROL [Concomitant]
  9. PULMICORT [Concomitant]

REACTIONS (3)
  - ATAXIA [None]
  - RENAL FAILURE [None]
  - RENAL TUBULAR NECROSIS [None]
